FAERS Safety Report 8495507-4 (Version None)
Quarter: 2012Q3

REPORT INFORMATION
  Report Type: 
  Country: None (occurrence: None)
  Receive Date: 20120709
  Receipt Date: 20120702
  Transmission Date: 20120928
  Serious: Yes (Hospitalization, Other)
  Sender: FDA-Public Use
  Company Number: ES-PFIZER INC-2012159426

PATIENT
  Age: 62 Year
  Sex: Female

DRUGS (6)
  1. DOXORUBICIN HCL [Suspect]
     Indication: BREAST CANCER
     Dosage: 60 MG/M2, UNK
  2. DEXAMETHASONE SODIUM PHOSPHATE [Concomitant]
     Indication: PROPHYLAXIS
     Dosage: 16 MG/D FOR 3 DAYS IN EACH CYCLE
  3. ANASTROZOLE [Concomitant]
     Indication: BREAST CANCER
     Dosage: 1 MG/D FOR 5 YEARS
  4. CHLORHEXIDINE [Concomitant]
     Indication: PROPHYLAXIS
     Dosage: 0.2%
  5. OMEPRAZOLE [Concomitant]
     Indication: PROPHYLAXIS
  6. CYCLOPHOSPHAMIDE [Suspect]
     Indication: BREAST CANCER
     Dosage: 600 MG/M2, CYCLIC (EVERY 21 DAYS)

REACTIONS (2)
  - OSTEONECROSIS OF JAW [None]
  - CHRONIC SINUSITIS [None]
